FAERS Safety Report 9311607 (Version 1)
Quarter: 2013Q2

REPORT INFORMATION
  Report Type: Report from Study
  Country: US (occurrence: US)
  Receive Date: 20130528
  Receipt Date: 20130528
  Transmission Date: 20140414
  Serious: No
  Sender: FDA-Public Use
  Company Number: US-ABBOTT-12P-163-1022934-00

PATIENT
  Age: 73 Year
  Sex: Male
  Weight: 63.56 kg

DRUGS (3)
  1. ZEMPLAR [Suspect]
     Indication: NEPHROPATHY
     Dates: start: 2011
  2. CYCLOSPORINE [Concomitant]
     Indication: NEPHROPATHY
  3. UNKNOWN ANTI-REJECTION MEDICATION [Concomitant]
     Indication: HEART TRANSPLANT
     Dates: start: 1997

REACTIONS (1)
  - Nasopharyngitis [Recovering/Resolving]
